FAERS Safety Report 7767021-2 (Version None)
Quarter: 2011Q3

REPORT INFORMATION
  Report Type: 
  Country: None (occurrence: None)
  Receive Date: 20110922
  Receipt Date: 20100831
  Transmission Date: 20111222
  Serious: Yes (Other)
  Sender: FDA-Public Use
  Company Number: US-ASTRAZENECA-2008UW05339

PATIENT
  Sex: Female
  Weight: 93 kg

DRUGS (34)
  1. RISPERDAL [Suspect]
     Dates: start: 19830101, end: 19980101
  2. RISPERDAL [Suspect]
     Dates: start: 19830101, end: 19980101
  3. ZYPREXA [Concomitant]
     Indication: SCHIZOPHRENIA
     Dates: start: 20000601, end: 20021101
  4. GEODON [Concomitant]
     Dosage: 60-80 MG
     Dates: start: 20010101
  5. PAXIL [Concomitant]
     Dates: start: 19900101, end: 20060101
  6. XANAX [Concomitant]
  7. KLONOPIN [Concomitant]
  8. SEROQUEL [Suspect]
     Indication: PSYCHOTIC DISORDER
     Route: 048
     Dates: start: 19991001, end: 20061201
  9. RISPERDAL [Suspect]
     Indication: ANXIETY
     Dates: start: 19950501, end: 19991001
  10. STELAZINE [Concomitant]
     Dates: start: 19680101
  11. IMMIPANMINE [Concomitant]
     Dates: start: 19680101
  12. ATIVAN [Concomitant]
  13. TRIAVIL [Concomitant]
     Dates: start: 19680101
  14. PROZAC [Concomitant]
     Dates: start: 19900101, end: 20060101
  15. WELLBUTRIN [Concomitant]
     Dosage: 150-300 MG
     Dates: start: 19900101, end: 20060101
  16. RISPERDAL [Suspect]
     Dates: start: 19830101, end: 19980101
  17. COGENTIN [Concomitant]
  18. ELAVIL [Concomitant]
     Dates: start: 19680101
  19. RISPERDAL [Suspect]
     Indication: PSYCHOTIC DISORDER
     Dates: start: 19950501, end: 19991001
  20. STELAZINE [Concomitant]
     Dates: start: 19690101
  21. TRILAFON [Concomitant]
     Dates: start: 19680101
  22. DEPAKOTE [Concomitant]
  23. SEROQUEL [Suspect]
     Indication: DEPRESSION
     Route: 048
     Dates: start: 19991001, end: 20061201
  24. RISPERDAL [Suspect]
     Indication: DEPRESSION
     Dates: start: 19950501, end: 19991001
  25. ABILIFY [Concomitant]
     Dates: start: 20010101
  26. CLOZAPINE [Concomitant]
     Dates: start: 19920101
  27. NAVANE [Concomitant]
     Dates: start: 19820101
  28. ARTANE [Concomitant]
     Dates: start: 19680101, end: 19830101
  29. NEURONTIN [Concomitant]
  30. SEROQUEL [Suspect]
     Indication: SCHIZOPHRENIA
     Route: 048
     Dates: start: 19991001, end: 20061201
  31. RISPERDAL [Suspect]
     Indication: SCHIZOPHRENIA
     Dates: start: 19950501, end: 19991001
  32. RISPERDAL [Suspect]
     Dates: start: 19830101, end: 19980101
  33. HALDOL [Concomitant]
     Dates: start: 19820101
  34. THORAZINE [Concomitant]
     Dates: start: 19900101, end: 19990101

REACTIONS (4)
  - WEIGHT INCREASED [None]
  - HYPERGLYCAEMIA [None]
  - OBESITY [None]
  - TARDIVE DYSKINESIA [None]
